FAERS Safety Report 20418111 (Version 1)
Quarter: 2022Q1

REPORT INFORMATION
  Report Type: Spontaneous
  Country: FR (occurrence: FR)
  Receive Date: 20220202
  Receipt Date: 20220202
  Transmission Date: 20220423
  Serious: Yes (Life-Threatening, Other)
  Sender: FDA-Public Use
  Company Number: FR-002147023-NVSC2022FR013119

PATIENT
  Age: 30 Year
  Sex: Male
  Weight: 68 kg

DRUGS (22)
  1. CELLCEPT [Suspect]
     Active Substance: MYCOPHENOLATE MOFETIL
     Indication: Graft versus host disease
     Dosage: 2G
     Route: 042
  2. CELLCEPT [Suspect]
     Active Substance: MYCOPHENOLATE MOFETIL
     Dosage: 2 G
     Route: 042
     Dates: start: 20200223, end: 20200223
  3. CELLCEPT [Suspect]
     Active Substance: MYCOPHENOLATE MOFETIL
     Dosage: 2 G
     Route: 042
     Dates: start: 20200215
  4. CYCLOSPORINE [Suspect]
     Active Substance: CYCLOSPORINE
     Indication: Graft versus host disease
     Dosage: 160 MG
     Route: 042
  5. CYCLOSPORINE [Suspect]
     Active Substance: CYCLOSPORINE
     Dosage: 160 MG
     Route: 042
     Dates: start: 20200223, end: 20200223
  6. CYCLOSPORINE [Suspect]
     Active Substance: CYCLOSPORINE
     Dosage: 160 MG, QD (ELECTRIC INTRAVENOUS SYRINGE)
     Route: 042
  7. CYCLOSPORINE [Suspect]
     Active Substance: CYCLOSPORINE
     Dosage: 160 MG
     Route: 042
     Dates: start: 20200215
  8. AMBISOME [Concomitant]
     Active Substance: AMPHOTERICIN B
     Indication: Fungal infection
     Dosage: 180 MG
     Route: 048
     Dates: start: 20200220
  9. ZOPICLONE [Concomitant]
     Active Substance: ZOPICLONE
     Indication: Insomnia
     Dosage: 1 DOSAGE FORM, PRN
     Route: 048
     Dates: start: 20200220
  10. FIDAXOMICIN [Concomitant]
     Active Substance: FIDAXOMICIN
     Indication: Clostridium difficile colitis
     Dosage: 200 MG
     Route: 048
     Dates: start: 20200214
  11. ESOMEPRAZOLE [Concomitant]
     Active Substance: ESOMEPRAZOLE
     Indication: Dyspepsia
     Dosage: 80 MG
     Route: 042
     Dates: start: 20200211
  12. ACYCLOVIR [Concomitant]
     Active Substance: ACYCLOVIR
     Indication: Infection prophylaxis
     Dosage: 750 MG
     Route: 042
     Dates: start: 20200212
  13. RIBAVIRIN [Concomitant]
     Active Substance: RIBAVIRIN
     Indication: Product used for unknown indication
     Dosage: UNK
     Dates: start: 20200223
  14. PIPERACILLIN SODIUM\TAZOBACTAM SODIUM [Concomitant]
     Active Substance: PIPERACILLIN SODIUM\TAZOBACTAM SODIUM
     Indication: Product used for unknown indication
     Dosage: UNK
     Route: 065
  15. CYCLOPHOSPHAMIDE [Concomitant]
     Active Substance: CYCLOPHOSPHAMIDE
     Indication: Product used for unknown indication
     Dosage: UNK
     Route: 065
  16. PHLOROGLUCINOL [Concomitant]
     Active Substance: PHLOROGLUCINOL
     Indication: Pain
     Dosage: 6 MG, PRN
     Route: 042
     Dates: start: 20200210
  17. URSODIOL [Concomitant]
     Active Substance: URSODIOL
     Indication: Cholelithiasis
     Dosage: 750 MG
     Route: 048
     Dates: start: 20200222
  18. FILGRASTIM [Concomitant]
     Active Substance: FILGRASTIM
     Indication: Growth disorder
     Dosage: 30 UNK
     Route: 058
     Dates: start: 20200215
  19. METOCLOPRAMIDE HYDROCHLORIDE [Concomitant]
     Active Substance: METOCLOPRAMIDE HYDROCHLORIDE
     Indication: Vomiting
     Dosage: 60 MG
     Route: 042
     Dates: start: 20200203
  20. MORPHINE [Concomitant]
     Active Substance: MORPHINE
     Indication: Pain
     Dosage: 48 MG, PRN
     Route: 042
     Dates: start: 20200212
  21. ACETAMINOPHEN [Concomitant]
     Active Substance: ACETAMINOPHEN
     Indication: Pain
     Dosage: 4 G, PRN
     Route: 042
     Dates: start: 20200211
  22. SPIRAMYCIN [Concomitant]
     Active Substance: SPIRAMYCIN
     Indication: Product used for unknown indication
     Dosage: UNK
     Route: 065

REACTIONS (13)
  - Cytomegalovirus infection [Unknown]
  - Pyrexia [Recovered/Resolved]
  - Hyponatraemia [Unknown]
  - Respiratory alkalosis [Unknown]
  - Diarrhoea [Unknown]
  - Parainfluenzae virus infection [Recovered/Resolved]
  - Aplasia [Unknown]
  - Hypokalaemia [Unknown]
  - Hepatosplenomegaly [Unknown]
  - Respiratory distress [Recovered/Resolved]
  - Oesophageal infection [Recovered/Resolved]
  - Jaundice cholestatic [Unknown]
  - Bronchiolitis [Recovered/Resolved]

NARRATIVE: CASE EVENT DATE: 20200218
